FAERS Safety Report 4848489-8 (Version None)
Quarter: 2005Q4

REPORT INFORMATION
  Report Type: 
  Country: None (occurrence: None)
  Receive Date: 20051115
  Receipt Date: 20050818
  Transmission Date: 20060501
  Serious: Yes (Other)
  Sender: FDA-Public Use
  Company Number: S05-USA-04072-01

PATIENT
  Age: 74 Year
  Sex: Female

DRUGS (11)
  1. NAMENDA [Suspect]
     Indication: DEMENTIA
     Dosage: 15 MG QD PO
     Route: 048
     Dates: start: 20050725, end: 20050101
  2. NAMENDA [Suspect]
     Indication: DEMENTIA
     Dosage: 5 MG QD PO
     Route: 048
     Dates: start: 20050711, end: 20050717
  3. NAMENDA [Suspect]
     Indication: DEMENTIA
     Dosage: 5 MG BID PO
     Route: 048
     Dates: start: 20050718, end: 20050724
  4. NAMENDA [Suspect]
     Indication: DEMENTIA
     Dosage: 5 MG BID PO
     Route: 048
     Dates: start: 20050101
  5. LIPITOR [Concomitant]
  6. PROTONIX [Concomitant]
  7. FOSAMAX [Concomitant]
  8. DILTIAZEM HCL [Concomitant]
  9. DITROPAN [Concomitant]
  10. COENZYME Q10 [Concomitant]
  11. BOOST [Concomitant]

REACTIONS (1)
  - SUICIDAL IDEATION [None]
